FAERS Safety Report 23611622 (Version 2)
Quarter: 2024Q2

REPORT INFORMATION
  Report Type: Spontaneous
  Country: DE (occurrence: DE)
  Receive Date: 20240308
  Receipt Date: 20240402
  Transmission Date: 20240715
  Serious: Yes (Hospitalization, Other)
  Sender: FDA-Public Use
  Company Number: DE-PFIZER INC-202400058398

PATIENT
  Age: 72 Year
  Sex: Male
  Weight: 59 kg

DRUGS (2)
  1. PAXLOVID [Suspect]
     Active Substance: NIRMATRELVIR\RITONAVIR
     Indication: COVID-19 treatment
     Dosage: 1 DF, 2X/DAY
     Route: 048
     Dates: start: 20231226, end: 20231230
  2. ASPIRIN [Concomitant]
     Active Substance: ASPIRIN
     Dosage: 1 DF, 1X/DAY (SINCE TWO YEARS)
     Dates: start: 2022

REACTIONS (7)
  - Hepatotoxicity [Recovered/Resolved]
  - Lipase increased [Recovered/Resolved]
  - Platelet count increased [Recovered/Resolved]
  - White blood cell count increased [Recovered/Resolved]
  - Hepatitis toxic [Recovered/Resolved]
  - Abdominal pain upper [Recovered/Resolved]
  - Leukocytosis [Recovered/Resolved]

NARRATIVE: CASE EVENT DATE: 20231230
